FAERS Safety Report 11155738 (Version 1)
Quarter: 2015Q2

REPORT INFORMATION
  Report Type: Spontaneous
  Country: US (occurrence: None)
  Receive Date: 20150601
  Receipt Date: 20150601
  Transmission Date: 20150821
  Serious: No
  Sender: FDA-Public Use
  Company Number: None

PATIENT
  Age: 78 Year
  Sex: Male
  Weight: 124.1 kg

DRUGS (1)
  1. IBUPROFEN. [Suspect]
     Active Substance: IBUPROFEN
     Indication: TOXIC EPIDERMAL NECROLYSIS
     Route: 048
     Dates: start: 20140127, end: 20140227

REACTIONS (3)
  - Lip blister [None]
  - Blister [None]
  - Rash [None]

NARRATIVE: CASE EVENT DATE: 20140227
